FAERS Safety Report 9939771 (Version 1)
Quarter: 2014Q1

REPORT INFORMATION
  Report Type: Report from Study
  Country: US (occurrence: US)
  Receive Date: 20140303
  Receipt Date: 20140303
  Transmission Date: 20141002
  Serious: Yes (Other)
  Sender: FDA-Public Use
  Company Number: US-ABBVIE-13P-163-1034528-00

PATIENT
  Sex: Female

DRUGS (9)
  1. HUMIRA [Suspect]
     Indication: PSORIASIS
     Dates: start: 201111
  2. PROVENTIL [Concomitant]
     Indication: ASTHMA
     Route: 055
  3. HYDROCODONE [Concomitant]
     Indication: PAIN
  4. ADVAIR [Concomitant]
     Indication: ASTHMA
     Dosage: 100/50 INHALER
     Route: 055
  5. NAPROXEN [Concomitant]
     Indication: BACK PAIN
  6. PRAVASTATIN [Concomitant]
     Indication: BLOOD CHOLESTEROL
  7. SINGULAIR [Concomitant]
     Indication: ASTHMA
     Dosage: AT BEDTIME
  8. RANITIDINE [Concomitant]
     Indication: GASTRIC DISORDER
  9. LOSARTAN HCT [Concomitant]
     Indication: HYPERTENSION

REACTIONS (5)
  - Cataract [Unknown]
  - Cataract [Unknown]
  - Upper respiratory tract infection [Unknown]
  - Psoriasis [Recovered/Resolved]
  - Psoriasis [Not Recovered/Not Resolved]
